FAERS Safety Report 25051834 (Version 1)
Quarter: 2025Q1

REPORT INFORMATION
  Report Type: Report from Study
  Country: US (occurrence: US)
  Receive Date: 20250307
  Receipt Date: 20250307
  Transmission Date: 20250409
  Serious: Yes (Hospitalization, Other)
  Sender: GILEAD
  Company Number: US-GILEAD-2025-0706167

PATIENT
  Sex: Female

DRUGS (22)
  1. AZTREONAM LYSINE [Suspect]
     Active Substance: AZTREONAM LYSINE
     Indication: Cystic fibrosis lung
     Dosage: INHALE 1 VIAL (75 MG) VIA ALTERA NEBULIZER THREE TIMES DAILY, FOR 28 DAYS ON AND 28 DAYS OFF
     Route: 055
  2. PULMOZYME [Concomitant]
     Active Substance: DORNASE ALFA
  3. COZAAR [Concomitant]
     Active Substance: LOSARTAN POTASSIUM
  4. CREON [Concomitant]
     Active Substance: PANCRELIPASE AMYLASE\PANCRELIPASE LIPASE\PANCRELIPASE PROTEASE
  5. LACTULOSE [Concomitant]
     Active Substance: LACTULOSE
  6. PROGRAF [Concomitant]
     Active Substance: TACROLIMUS
  7. PROZAC [Concomitant]
     Active Substance: FLUOXETINE HYDROCHLORIDE
  8. HUMALOG [Concomitant]
     Active Substance: INSULIN LISPRO
  9. OMEPRAZOLE [Concomitant]
     Active Substance: OMEPRAZOLE
  10. LANTUS [Concomitant]
     Active Substance: INSULIN GLARGINE
  11. ADVAIR HFA [Concomitant]
     Active Substance: FLUTICASONE PROPIONATE\SALMETEROL XINAFOATE
  12. URSODIOL [Concomitant]
     Active Substance: URSODIOL
  13. FERROUS SULFATE [Concomitant]
     Active Substance: FERROUS SULFATE
  14. MIRALAX [Concomitant]
     Active Substance: POLYETHYLENE GLYCOL 3350
  15. DOXYCYCLINE HYCLATE [Concomitant]
     Active Substance: DOXYCYCLINE HYCLATE
  16. CALCIUM CITRATE [Concomitant]
     Active Substance: CALCIUM CITRATE
  17. VITA D3 [Concomitant]
  18. ZYRTEC [Concomitant]
     Active Substance: CETIRIZINE HYDROCHLORIDE
  19. NASONEX [Concomitant]
     Active Substance: MOMETASONE FUROATE
  20. AQUADEKS [ASCORBIC ACID;BETACAROTENE;BIOTIN;CALCIUM PANTOTHENATE;COLEC [Concomitant]
  21. PROAIR HFA [Concomitant]
     Active Substance: ALBUTEROL SULFATE
  22. FOLIC ACID [Concomitant]
     Active Substance: FOLIC ACID

REACTIONS (2)
  - Infection [Unknown]
  - Cystic fibrosis [Unknown]
